FAERS Safety Report 5427170-0 (Version None)
Quarter: 2007Q3

REPORT INFORMATION
  Report Type: 
  Country: None (occurrence: None)
  Receive Date: 20070828
  Receipt Date: 20070817
  Transmission Date: 20080115
  Serious: Yes (Other)
  Sender: FDA-Public Use
  Company Number: PHBS2007JP14044

PATIENT

DRUGS (1)
  1. VOLTAREN [Suspect]
     Dosage: 25 MG/DAY
     Route: 054

REACTIONS (2)
  - ANAL HAEMORRHAGE [None]
  - TRAUMATIC HAEMORRHAGE [None]
